FAERS Safety Report 10286159 (Version 2)
Quarter: 2014Q3

REPORT INFORMATION
  Report Type: Spontaneous
  Country: US (occurrence: None)
  Receive Date: 20140703
  Receipt Date: 20140910
  Transmission Date: 20150326
  Serious: Yes (Death, Hospitalization)
  Sender: FDA-Public Use
  Company Number: UNT-2014-002747

PATIENT
  Age: 69 Year
  Sex: Female
  Weight: 60.3 kg

DRUGS (3)
  1. REVATIO (SILDENAFIL CITRATE) COUMADIN?/00014802/ (WARFARIN SODIUM) [Concomitant]
  2. COUMADIN [Concomitant]
     Active Substance: WARFARIN SODIUM
  3. REMODULIN [Suspect]
     Active Substance: TREPROSTINIL
     Indication: PULMONARY ARTERIAL HYPERTENSION
     Route: 058
     Dates: start: 20120314

REACTIONS (4)
  - Loss of consciousness [None]
  - Subdural haematoma [None]
  - VIIth nerve paralysis [None]
  - Dysarthria [None]

NARRATIVE: CASE EVENT DATE: 20140603
